FAERS Safety Report 8387353-7 (Version None)
Quarter: 2012Q2

REPORT INFORMATION
  Report Type: 
  Country: None (occurrence: None)
  Receive Date: 20120525
  Receipt Date: 20120514
  Transmission Date: 20120825
  Serious: Yes (Hospitalization, Other)
  Sender: FDA-Public Use
  Company Number: US-VIROPHARMA INCORPORATED-20120423CINRY2907

PATIENT
  Sex: Female
  Weight: 72.64 kg

DRUGS (9)
  1. ESTROGEN PATCHES [Concomitant]
     Indication: IN VITRO FERTILISATION
     Route: 062
     Dates: start: 20110703, end: 20111009
  2. CINRYZE [Suspect]
     Indication: HEREDITARY ANGIOEDEMA
     Dates: start: 20090201, end: 20110901
  3. PROGESTERONE [Concomitant]
     Indication: IN VITRO FERTILISATION
     Route: 030
     Dates: start: 20110717, end: 20111009
  4. CINRYZE [Suspect]
     Dates: start: 20110901
  5. HEPARIN LOCK-FLUSH [Concomitant]
     Indication: CENTRAL VENOUS CATHETERISATION
     Dates: start: 20100201
  6. MULTI-VITAMINS [Concomitant]
     Indication: MEDICAL DIET
  7. FOLIC ACID [Concomitant]
     Indication: PREGNANCY
     Route: 048
     Dates: start: 20080101, end: 20120404
  8. PHENOBARBITAL TAB [Concomitant]
     Indication: EPILEPSY
     Route: 048
     Dates: start: 20010101
  9. MULTI-VITAMINS [Concomitant]
     Indication: PREGNANCY
     Dosage: UNKNOWN
     Route: 048
     Dates: start: 20080101

REACTIONS (7)
  - HEREDITARY ANGIOEDEMA [None]
  - MATERNAL EXPOSURE DURING PREGNANCY [None]
  - OFF LABEL USE [None]
  - ABORTION SPONTANEOUS [None]
  - RETAINED PLACENTA OR MEMBRANES [None]
  - GESTATIONAL DIABETES [None]
  - INTRAUTERINE INFECTION [None]
